FAERS Safety Report 9931278 (Version 1)
Quarter: 2014Q1

REPORT INFORMATION
  Report Type: Report from Study
  Country: US (occurrence: US)
  Receive Date: 20140228
  Receipt Date: 20140228
  Transmission Date: 20141002
  Serious: Yes (Death)
  Sender: FDA-Public Use
  Company Number: US-ROCHE-1334178

PATIENT
  Age: 62 Year
  Sex: Female

DRUGS (49)
  1. AVASTIN [Suspect]
     Indication: SMALL INTESTINE CARCINOMA
     Route: 042
     Dates: start: 20110504
  2. AVASTIN [Suspect]
     Route: 042
     Dates: start: 20110525
  3. AVASTIN [Suspect]
     Route: 042
     Dates: start: 20110622
  4. AVASTIN [Suspect]
     Route: 042
     Dates: start: 20110706
  5. AVASTIN [Suspect]
     Route: 042
     Dates: start: 20110720
  6. AVASTIN [Suspect]
     Route: 042
     Dates: start: 20110907
  7. AVASTIN [Suspect]
     Route: 042
     Dates: start: 20111025
  8. AVASTIN [Suspect]
     Route: 042
     Dates: start: 20111115
  9. AVASTIN [Suspect]
     Route: 042
     Dates: start: 20120110
  10. AVASTIN [Suspect]
     Route: 042
     Dates: start: 20120224
  11. XELODA [Suspect]
     Indication: PRODUCT USED FOR UNKNOWN INDICATION
     Route: 065
  12. KYTRIL [Suspect]
     Indication: PRODUCT USED FOR UNKNOWN INDICATION
     Route: 065
  13. ABRAXANE [Concomitant]
     Route: 042
  14. ELOXATIN [Concomitant]
     Route: 042
  15. ELOXATIN [Concomitant]
     Route: 042
     Dates: start: 20110907
  16. 5-FU [Concomitant]
     Route: 042
     Dates: start: 20110706
  17. 5-FU [Concomitant]
     Route: 042
     Dates: start: 20110525
  18. LEUCOVORIN [Concomitant]
     Route: 042
  19. EPIRUBICIN [Concomitant]
     Route: 042
     Dates: start: 20111025
  20. EPIRUBICIN [Concomitant]
     Route: 042
     Dates: start: 20111115
  21. EPIRUBICIN [Concomitant]
     Route: 042
     Dates: start: 20120110
  22. ALOXI [Concomitant]
     Route: 042
  23. ZANTAC [Concomitant]
     Route: 065
  24. ZOFRAN [Concomitant]
     Route: 065
  25. MITOMYCIN [Concomitant]
     Route: 042
  26. MITOMYCIN [Concomitant]
     Route: 042
     Dates: start: 20120110
  27. NYSTATIN [Concomitant]
  28. FENTANYL PATCH [Concomitant]
     Route: 065
  29. TPN [Concomitant]
  30. PREDNISONE [Concomitant]
     Route: 065
  31. VANCOMYCIN [Concomitant]
  32. MAGNESIUM SULFATE [Concomitant]
  33. CALCIUM GLUCONATE [Concomitant]
  34. DEXAMETHASONE [Concomitant]
     Route: 042
  35. LORAZEPAM [Concomitant]
     Route: 042
  36. PROCRIT [Concomitant]
     Dosage: 40,000 UNITS
     Route: 058
  37. DIOVAN [Concomitant]
  38. TINCTURE OF OPIUM [Concomitant]
  39. LEVAQUIN [Concomitant]
     Route: 065
  40. PROTONIX (UNITED STATES) [Concomitant]
  41. NORVASC [Concomitant]
  42. LIPITOR [Concomitant]
  43. SINGULAR [Concomitant]
  44. FORADIL [Concomitant]
  45. METFORMIN [Concomitant]
     Route: 065
  46. OXYCODONE [Concomitant]
     Route: 065
  47. ACTIQ [Concomitant]
     Dosage: 4/D
     Route: 065
  48. MEGACE [Concomitant]
  49. CADUET [Concomitant]

REACTIONS (31)
  - Death [Fatal]
  - Neuropathy peripheral [Unknown]
  - Pain [Unknown]
  - Decubitus ulcer [Unknown]
  - Hypoaesthesia [Unknown]
  - Paraesthesia [Unknown]
  - Constipation [Unknown]
  - Diarrhoea [Unknown]
  - Pruritus [Unknown]
  - Nausea [Unknown]
  - Asthenia [Unknown]
  - Chest pain [Unknown]
  - Ligament sprain [Unknown]
  - Anuria [Unknown]
  - Hypersplenism [Unknown]
  - Decreased appetite [Unknown]
  - Dyspnoea exertional [Unknown]
  - Staphylococcal infection [Unknown]
  - Oedema [Unknown]
  - Stomatitis [Unknown]
  - Stomatitis [Unknown]
  - Cachexia [Unknown]
  - Vomiting [Unknown]
  - Steatorrhoea [Unknown]
  - Anaemia [Unknown]
  - Hypertension [Unknown]
  - Dysphonia [Unknown]
  - Bronchitis [Unknown]
  - Upper-airway cough syndrome [Unknown]
  - Disease progression [Unknown]
  - Off label use [Unknown]
